FAERS Safety Report 16250522 (Version 3)
Quarter: 2019Q2

REPORT INFORMATION
  Report Type: Spontaneous
  Country: US (occurrence: US)
  Receive Date: 20190429
  Receipt Date: 20190509
  Transmission Date: 20190711
  Serious: No
  Sender: FDA-Public Use
  Company Number: US-PFIZER INC-2019176680

PATIENT
  Age: 38 Year
  Sex: Female
  Weight: 72 kg

DRUGS (3)
  1. LYRICA [Suspect]
     Active Substance: PREGABALIN
     Dosage: 75 MG, 2X/DAY (ONE CAPSULE DURING DAY AND ONE AT NIGHT)
  2. LYRICA [Suspect]
     Active Substance: PREGABALIN
     Dosage: 50 MG, 2X/DAY
  3. LYRICA [Suspect]
     Active Substance: PREGABALIN
     Indication: SPINAL CORD INJURY
     Dosage: 50 MG, 1X/DAY (ONCE AT NIGHT)

REACTIONS (8)
  - Intentional product misuse [Unknown]
  - Mouth swelling [Unknown]
  - Upper-airway cough syndrome [Recovering/Resolving]
  - Eating disorder [Unknown]
  - Stomatitis [Recovering/Resolving]
  - Dysgeusia [Not Recovered/Not Resolved]
  - Disorientation [Unknown]
  - Feeling abnormal [Unknown]

NARRATIVE: CASE EVENT DATE: 201903
